FAERS Safety Report 4811718-0 (Version None)
Quarter: 2005Q4

REPORT INFORMATION
  Report Type: 
  Country: None (occurrence: None)
  Receive Date: 20051025
  Receipt Date: 20051006
  Transmission Date: 20060501
  Serious: Yes (Death, Hospitalization)
  Sender: FDA-Public Use
  Company Number: WAES 0510GBR00061

PATIENT
  Age: 42 Year
  Sex: Male

DRUGS (9)
  1. DECADRON [Suspect]
     Indication: METASTASES TO CENTRAL NERVOUS SYSTEM
     Dosage: SEE IMAGE
     Route: 048
     Dates: start: 20050329, end: 20050407
  2. DECADRON [Suspect]
     Indication: METASTASES TO CENTRAL NERVOUS SYSTEM
     Dosage: SEE IMAGE
     Route: 048
     Dates: start: 20050408, end: 20050410
  3. DECADRON [Suspect]
     Indication: METASTASES TO CENTRAL NERVOUS SYSTEM
     Dosage: SEE IMAGE
     Route: 048
     Dates: start: 20050411, end: 20050415
  4. DECADRON [Suspect]
     Indication: METASTASES TO CENTRAL NERVOUS SYSTEM
     Dosage: SEE IMAGE
     Route: 048
     Dates: start: 20050416, end: 20050419
  5. DECADRON [Suspect]
     Indication: METASTASES TO CENTRAL NERVOUS SYSTEM
     Dosage: SEE IMAGE
     Route: 048
     Dates: start: 20050420, end: 20050427
  6. CAP BLINDED THERAPY [Suspect]
     Indication: METASTASES TO CENTRAL NERVOUS SYSTEM
     Dosage: PO
     Route: 048
     Dates: start: 20050228, end: 20050320
  7. DANTHRON (+) POLOXAMER 188 [Concomitant]
  8. OMEPRAZOLE [Concomitant]
  9. POLYETHYLENE GLYCOL 3350/KCL/NAHCO3/NACL [Concomitant]

REACTIONS (5)
  - DISEASE PROGRESSION [None]
  - HEADACHE [None]
  - NAUSEA [None]
  - NON-SMALL CELL LUNG CANCER [None]
  - VOMITING [None]
